FAERS Safety Report 18111374 (Version 1)
Quarter: 2020Q3

REPORT INFORMATION
  Report Type: Spontaneous
  Country: US (occurrence: US)
  Receive Date: 20200805
  Receipt Date: 20200805
  Transmission Date: 20201103
  Serious: No
  Sender: FDA-Public Use
  Company Number: US-JNJFOC-20200742891

PATIENT
  Age: 51 Year
  Sex: Male
  Weight: 77.18 kg

DRUGS (1)
  1. PEPCID AC [Suspect]
     Active Substance: FAMOTIDINE
     Indication: DYSPEPSIA
     Dosage: USED A COUPLE TIMES; DATE OF LAST ADMINISTRATION: 25?JUL?2020
     Route: 048
     Dates: start: 20200724

REACTIONS (1)
  - Abdominal discomfort [Recovered/Resolved]

NARRATIVE: CASE EVENT DATE: 20200724
